FAERS Safety Report 20833465 (Version 1)
Quarter: 2022Q2

REPORT INFORMATION
  Report Type: Spontaneous
  Country: ES (occurrence: ES)
  Receive Date: 20220516
  Receipt Date: 20220516
  Transmission Date: 20220721
  Serious: Yes (Other)
  Sender: FDA-Public Use
  Company Number: ES-SA-2022SA166234

PATIENT
  Age: 98 Year
  Sex: Female

DRUGS (1)
  1. AFLIBERCEPT [Suspect]
     Active Substance: AFLIBERCEPT
     Indication: Neovascular age-related macular degeneration
     Dosage: INTRAVITREAL INJECTIONS
     Route: 031

REACTIONS (9)
  - Necrotising scleritis [Recovered/Resolved]
  - Aspergillus infection [Recovered/Resolved]
  - Eye pain [Recovered/Resolved]
  - Ocular hyperaemia [Recovered/Resolved]
  - Purulent discharge [Recovered/Resolved]
  - Scleral thinning [Recovered/Resolved]
  - Necrosis [Recovered/Resolved]
  - Nodule [Recovered/Resolved]
  - Corneal deposits [Recovered/Resolved]
